FAERS Safety Report 5736832-7 (Version None)
Quarter: 2008Q2

REPORT INFORMATION
  Report Type: 
  Country: None (occurrence: None)
  Receive Date: 20080508
  Receipt Date: 20080422
  Transmission Date: 20081010
  Serious: Yes (Other)
  Sender: FDA-Public Use
  Company Number: 8032316

PATIENT
  Age: 11 Year
  Sex: Female
  Weight: 53.9 kg

DRUGS (1)
  1. METHYLPHENIDATE HCL [Suspect]
     Indication: ATTENTION DEFICIT/HYPERACTIVITY DISORDER
     Dosage: 20 MG 1/D
     Dates: start: 20061204

REACTIONS (7)
  - ANXIETY [None]
  - APATHY [None]
  - DECREASED APPETITE [None]
  - FATIGUE [None]
  - GASTROINTESTINAL PAIN [None]
  - HEADACHE [None]
  - MOROSE [None]
